FAERS Safety Report 12161072 (Version 2)
Quarter: 2016Q1

REPORT INFORMATION
  Report Type: Spontaneous
  Country: US (occurrence: US)
  Receive Date: 20160308
  Receipt Date: 20160323
  Transmission Date: 20160526
  Serious: Yes (Hospitalization)
  Sender: FDA-Public Use
  Company Number: US-BIOGEN-2016BI00201313

PATIENT

DRUGS (2)
  1. TECFIDERA [Suspect]
     Active Substance: DIMETHYL FUMARATE
     Indication: MULTIPLE SCLEROSIS
     Route: 065
  2. TECFIDERA [Suspect]
     Active Substance: DIMETHYL FUMARATE
     Route: 065

REACTIONS (10)
  - Skin discolouration [Unknown]
  - Flushing [Unknown]
  - White blood cell count decreased [Unknown]
  - Urticaria [Unknown]
  - Dehydration [Unknown]
  - Weight decreased [Unknown]
  - General physical health deterioration [Unknown]
  - Influenza [Unknown]
  - Gastrointestinal infection [Unknown]
  - Vomiting [Unknown]
